FAERS Safety Report 25925460 (Version 3)
Quarter: 2025Q4

REPORT INFORMATION
  Report Type: Spontaneous
  Country: US (occurrence: US)
  Receive Date: 20251015
  Receipt Date: 20251112
  Transmission Date: 20260117
  Serious: No
  Sender: BRISTOL-MYERS SQUIBB COMPANY
  Company Number: US-BRISTOL-MYERS SQUIBB COMPANY-2025-140482

PATIENT

DRUGS (1)
  1. COBENFY [Suspect]
     Active Substance: TROSPIUM CHLORIDE\XANOMELINE
     Indication: Product used for unknown indication
     Dosage: STRENGTH: 50/20MG CAPSULES IN THE MORNING FOR A FEW DAYS AND IN THE EVENING.

REACTIONS (3)
  - Dysuria [Unknown]
  - Dyschezia [Unknown]
  - Intentional product misuse [Unknown]
